FAERS Safety Report 16215574 (Version 2)
Quarter: 2019Q4

REPORT INFORMATION
  Report Type: Report from Study
  Country: CA (occurrence: CA)
  Receive Date: 20190419
  Receipt Date: 20191010
  Transmission Date: 20200122
  Serious: Yes (Other)
  Sender: FDA-Public Use
  Company Number: CA-AMGEN-CANSL2019058947

PATIENT
  Age: 77 Year
  Sex: Male

DRUGS (1)
  1. NPLATE [Suspect]
     Active Substance: ROMIPLOSTIM
     Indication: IMMUNE THROMBOCYTOPENIC PURPURA
     Dosage: 500 MICROGRAM, QWK
     Route: 065
     Dates: start: 20110526

REACTIONS (1)
  - Platelet count abnormal [Unknown]

NARRATIVE: CASE EVENT DATE: 20190408
